FAERS Safety Report 16045717 (Version 13)
Quarter: 2022Q1

REPORT INFORMATION
  Report Type: Report from Study
  Country: TR (occurrence: None)
  Receive Date: 20190307
  Receipt Date: 20220322
  Transmission Date: 20220423
  Serious: Yes (Hospitalization)
  Sender: FDA-Public Use
  Company Number: TR-ROCHE-2105811

PATIENT
  Age: 65 Year
  Sex: Female
  Weight: 69 kg

DRUGS (70)
  1. PLACEBO [Suspect]
     Active Substance: UNSPECIFIED INGREDIENT
     Indication: Ovarian cancer
     Dosage: DATE OF MOST RECENT DOSE OF BLINDED ATEZOLIZUMAB PRIOR TO AE ONSET: 25/MAY/2018?DATE OF MOST RECENT
     Route: 042
     Dates: start: 20180406
  2. PACLITAXEL [Suspect]
     Active Substance: PACLITAXEL
     Indication: Ovarian cancer
     Dosage: ON DAY 1 OF EACH 21-DAY CYCLE, RECENT DOSE ON  25/MAY/2018 ON 230 MG (ADVERSE EVENT: VOMITING).?DOSE
     Route: 042
     Dates: start: 20180406
  3. CARBOPLATIN [Suspect]
     Active Substance: CARBOPLATIN
     Indication: Ovarian cancer
     Dosage: AT A DOSE TO ACHIEVE A TARGET AREA UNDER THE CURVE (AUC) OF 6 MILLIGRAMS PER MILLILITER*MINUTE (MG/M
     Route: 042
     Dates: start: 20180406
  4. BEVACIZUMAB [Suspect]
     Active Substance: BEVACIZUMAB
     Indication: Ovarian cancer
     Dosage: DATE OF MOST RECENT DOSE PRIOR TO SAE ONSET 25/MAY/2018, 900 MG.
     Route: 042
     Dates: start: 20180427
  5. AMITRIPTYLINE [Concomitant]
     Active Substance: AMITRIPTYLINE
     Indication: Headache
     Dates: start: 20181130
  6. PALONOSETRON [Concomitant]
     Active Substance: PALONOSETRON
     Indication: Premedication
     Dates: start: 20180406, end: 20180406
  7. PALONOSETRON [Concomitant]
     Active Substance: PALONOSETRON
     Indication: Pain
     Dates: start: 20180427, end: 20180427
  8. PALONOSETRON [Concomitant]
     Active Substance: PALONOSETRON
     Dates: start: 20180710, end: 20180710
  9. PALONOSETRON [Concomitant]
     Active Substance: PALONOSETRON
     Dates: start: 20180810, end: 20180810
  10. PALONOSETRON [Concomitant]
     Active Substance: PALONOSETRON
     Dates: start: 20180911, end: 20180911
  11. RANITIDINE HYDROCHLORIDE [Concomitant]
     Active Substance: RANITIDINE HYDROCHLORIDE
     Indication: Premedication
     Dates: start: 20180406, end: 20180406
  12. RANITIDINE HYDROCHLORIDE [Concomitant]
     Active Substance: RANITIDINE HYDROCHLORIDE
     Dates: start: 20180427, end: 20180427
  13. RANITIDINE HYDROCHLORIDE [Concomitant]
     Active Substance: RANITIDINE HYDROCHLORIDE
     Dates: start: 20180710, end: 20180710
  14. RANITIDINE HYDROCHLORIDE [Concomitant]
     Active Substance: RANITIDINE HYDROCHLORIDE
     Dates: start: 20180810, end: 20180810
  15. RANITIDINE HYDROCHLORIDE [Concomitant]
     Active Substance: RANITIDINE HYDROCHLORIDE
     Dates: start: 20180911, end: 20180911
  16. DEXAMETHASONE [Concomitant]
     Active Substance: DEXAMETHASONE
     Indication: Premedication
     Route: 042
     Dates: start: 20180406, end: 20180406
  17. DEXAMETHASONE [Concomitant]
     Active Substance: DEXAMETHASONE
     Route: 042
     Dates: start: 20180427, end: 20180427
  18. DEXAMETHASONE [Concomitant]
     Active Substance: DEXAMETHASONE
     Route: 042
     Dates: start: 20180710, end: 20180710
  19. DEXAMETHASONE [Concomitant]
     Active Substance: DEXAMETHASONE
     Route: 042
     Dates: start: 20180810, end: 20180810
  20. DEXAMETHASONE [Concomitant]
     Active Substance: DEXAMETHASONE
     Route: 042
     Dates: start: 20180911, end: 20180911
  21. FILGRASTIM [Concomitant]
     Active Substance: FILGRASTIM
     Indication: Neutrophil count decreased
     Dates: start: 20180416, end: 20180417
  22. FILGRASTIM [Concomitant]
     Active Substance: FILGRASTIM
     Indication: Anaemia
     Dates: start: 20180608, end: 20180608
  23. FILGRASTIM [Concomitant]
     Active Substance: FILGRASTIM
     Dosage: PRN (AS NEEDED)
     Route: 058
     Dates: start: 20180810, end: 20180810
  24. FILGRASTIM [Concomitant]
     Active Substance: FILGRASTIM
     Dosage: PRN (AS NEEDED)
     Route: 058
     Dates: start: 20180504, end: 20180518
  25. HUMAN RED BLOOD CELL [Concomitant]
     Active Substance: HUMAN RED BLOOD CELL
     Indication: Anaemia
     Dates: start: 20180417, end: 20180417
  26. DESLORATADINE [Concomitant]
     Active Substance: DESLORATADINE
     Indication: Rhinitis allergic
     Dates: start: 2012
  27. LEVOTHYROXINE [Concomitant]
     Active Substance: LEVOTHYROXINE
     Indication: Hypothyroidism
     Dates: start: 1995
  28. TROSPIUM [Concomitant]
     Active Substance: TROSPIUM
     Indication: Urinary incontinence
     Dates: start: 201712
  29. CETIRIZINE HYDROCHLORIDE [Concomitant]
     Active Substance: CETIRIZINE HYDROCHLORIDE
     Indication: Rash pustular
     Dates: start: 20180430
  30. ACETAMINOPHEN [Concomitant]
     Active Substance: ACETAMINOPHEN
     Indication: Arthralgia
     Dates: start: 20180427
  31. ACETAMINOPHEN [Concomitant]
     Active Substance: ACETAMINOPHEN
     Dates: start: 20180813, end: 20180830
  32. LOPERAMIDE [Concomitant]
     Active Substance: LOPERAMIDE
     Indication: Diarrhoea
     Dates: start: 20180518
  33. LOPERAMIDE [Concomitant]
     Active Substance: LOPERAMIDE
     Dates: start: 20180504, end: 20180518
  34. TRAMADOL HCL [Concomitant]
     Active Substance: TRAMADOL HYDROCHLORIDE
     Indication: Pain
     Dates: start: 20180612, end: 20180628
  35. TRAMADOL HCL [Concomitant]
     Active Substance: TRAMADOL HYDROCHLORIDE
     Dates: start: 20180504, end: 20180518
  36. WARFARIN SODIUM [Concomitant]
     Active Substance: WARFARIN SODIUM
     Indication: Thrombocytopenia
     Dates: start: 20180612, end: 20180628
  37. WARFARIN SODIUM [Concomitant]
     Active Substance: WARFARIN SODIUM
     Indication: Embolism
     Dates: start: 20180813, end: 20180830
  38. LEVOTHYROXINE SODIUM [Concomitant]
     Active Substance: LEVOTHYROXINE SODIUM
     Indication: Hypothyroidism
     Dosage: PRN (AS NEEDED)
     Route: 048
     Dates: start: 20180612, end: 20180628
  39. LEVOTHYROXINE SODIUM [Concomitant]
     Active Substance: LEVOTHYROXINE SODIUM
     Dates: start: 20180504, end: 20180518
  40. LEVOTHYROXINE SODIUM [Concomitant]
     Active Substance: LEVOTHYROXINE SODIUM
     Dates: start: 20180528, end: 20180604
  41. PANTOPRAZOLE [Concomitant]
     Active Substance: PANTOPRAZOLE
     Dates: start: 20180612, end: 20180628
  42. PANTOPRAZOLE [Concomitant]
     Active Substance: PANTOPRAZOLE
     Dates: start: 20180504, end: 20180518
  43. PANTOPRAZOLE [Concomitant]
     Active Substance: PANTOPRAZOLE
     Dates: start: 20180528, end: 20180604
  44. PANTOPRAZOLE [Concomitant]
     Active Substance: PANTOPRAZOLE
     Dates: start: 20180813, end: 20180830
  45. FENTANYL [Concomitant]
     Active Substance: FENTANYL
     Indication: Pain
     Route: 062
     Dates: start: 20180731
  46. LANSOPRAZOLE [Concomitant]
     Active Substance: LANSOPRAZOLE
     Dates: start: 20180731
  47. SUCRALFATE [Concomitant]
     Active Substance: SUCRALFATE
     Dates: start: 20180504, end: 20180518
  48. SUCRALFATE [Concomitant]
     Active Substance: SUCRALFATE
     Dates: start: 20180528, end: 20180604
  49. SUCRALFATE [Concomitant]
     Active Substance: SUCRALFATE
     Dates: start: 20180416, end: 20180419
  50. TEICOPLANIN [Concomitant]
     Active Substance: TEICOPLANIN
     Indication: Infection
     Dates: start: 20180504, end: 20180518
  51. FLUCONAZOLE [Concomitant]
     Active Substance: FLUCONAZOLE
     Indication: Infection
     Dates: start: 20180504, end: 20180518
  52. MAGNESIUM SULFATE [Concomitant]
     Active Substance: MAGNESIUM SULFATE
     Dates: start: 20180504, end: 20180518
  53. MEROPENEM [Concomitant]
     Active Substance: MEROPENEM
     Indication: Infection
     Dates: start: 20180504, end: 20180518
  54. METRONIDAZOLE [Concomitant]
     Active Substance: METRONIDAZOLE
     Indication: Infection
     Dates: start: 20180504, end: 20180518
  55. PRILOCAINE [Concomitant]
     Active Substance: PRILOCAINE
     Indication: Anaesthesia
     Dates: start: 20180504, end: 20180518
  56. PIPERACILLIN [Concomitant]
     Active Substance: PIPERACILLIN
     Indication: Infection
     Dates: start: 20180504, end: 20180518
  57. PIPERACILLIN [Concomitant]
     Active Substance: PIPERACILLIN
     Indication: Pyrexia
     Dates: start: 20180813, end: 20180830
  58. TAZOBACTAM [Concomitant]
     Active Substance: TAZOBACTAM
     Indication: Infection
     Dates: start: 20180504, end: 20180518
  59. SODIUM AMIDOTRIZOATE [Concomitant]
     Dates: start: 20180509, end: 20180509
  60. MEGESTROL ACETATE [Concomitant]
     Active Substance: MEGESTROL ACETATE
     Indication: Decreased appetite
     Dates: start: 20180528, end: 20180604
  61. LINEZOLID [Concomitant]
     Active Substance: LINEZOLID
     Indication: Skin infection
     Dates: start: 20180813, end: 20180830
  62. TRANEXAMIC ACID [Concomitant]
     Active Substance: TRANEXAMIC ACID
     Dosage: RISK OF BLEEDING
     Dates: start: 20180813, end: 20180830
  63. HUMAN RED BLOOD CELL [Concomitant]
     Active Substance: HUMAN RED BLOOD CELL
     Dosage: SUSPENSION
  64. MEFENAMIC ACID [Concomitant]
     Active Substance: MEFENAMIC ACID
     Indication: Headache
     Dates: start: 20181130
  65. TROSPIUM CHLORIDE [Concomitant]
     Active Substance: TROSPIUM CHLORIDE
     Indication: Cystitis
     Dates: start: 20190624
  66. METOCLOPRAMIDE [Concomitant]
     Active Substance: METOCLOPRAMIDE
  67. LEVOTHYROXINE SODIUM [Concomitant]
     Active Substance: LEVOTHYROXINE SODIUM
  68. ORNIDAZOLE [Concomitant]
     Active Substance: ORNIDAZOLE
     Indication: Diarrhoea
     Dates: start: 20180416, end: 20180419
  69. CEFTRIAXONE [Concomitant]
     Active Substance: CEFTRIAXONE
     Dates: start: 20180813, end: 20180830
  70. LINEZOLID [Concomitant]
     Active Substance: LINEZOLID

REACTIONS (10)
  - International normalised ratio increased [Recovered/Resolved]
  - Vomiting [Recovered/Resolved]
  - Diarrhoea [Recovered/Resolved]
  - Vomiting [Recovered/Resolved]
  - Embolism [Recovering/Resolving]
  - Diarrhoea [Recovered/Resolved]
  - Febrile neutropenia [Recovered/Resolved]
  - Platelet count decreased [Recovered/Resolved]
  - Mucosal inflammation [Recovered/Resolved]
  - Pyrexia [Recovered/Resolved]

NARRATIVE: CASE EVENT DATE: 20180407
